FAERS Safety Report 14419988 (Version 1)
Quarter: 2018Q1

REPORT INFORMATION
  Report Type: Spontaneous
  Country: ES (occurrence: ES)
  Receive Date: 20180122
  Receipt Date: 20180122
  Transmission Date: 20180509
  Serious: Yes (Other)
  Sender: FDA-Public Use
  Company Number: ES-PFIZER INC-2018025638

PATIENT
  Sex: Male

DRUGS (2)
  1. ZITROMAX [Suspect]
     Active Substance: AZITHROMYCIN
     Indication: ASTHMA
     Dosage: 1.5 ML, UNK
  2. FLIXOTIDE [Suspect]
     Active Substance: FLUTICASONE PROPIONATE
     Indication: ASTHMA
     Dosage: UNK

REACTIONS (4)
  - Product use in unapproved indication [Unknown]
  - Tonsillitis [Recovered/Resolved]
  - Apnoea [Unknown]
  - Deafness [Unknown]
